FAERS Safety Report 4825118-0 (Version None)
Quarter: 2005Q4

REPORT INFORMATION
  Report Type: 
  Country: None (occurrence: None)
  Receive Date: 20051109
  Receipt Date: 20051109
  Transmission Date: 20060501
  Serious: No
  Sender: FDA-Public Use
  Company Number: None

PATIENT
  Age: 78 Year
  Sex: Male

DRUGS (1)
  1. MEGACE [Suspect]
     Indication: WEIGHT DECREASED
     Dosage: 20ML DAILY ORAL
     Route: 048
     Dates: start: 20050916, end: 20051027

REACTIONS (1)
  - INTRACARDIAC THROMBUS [None]
